FAERS Safety Report 10457857 (Version 1)
Quarter: 2014Q3

REPORT INFORMATION
  Report Type: Spontaneous
  Country: FR (occurrence: FR)
  Receive Date: 20140916
  Receipt Date: 20140916
  Transmission Date: 20150326
  Serious: Yes (Life-Threatening, Hospitalization)
  Sender: FDA-Public Use
  Company Number: FR-GLAXOSMITHKLINE-B1031798A

PATIENT
  Age: 56 Year
  Sex: Male
  Weight: 76 kg

DRUGS (3)
  1. IMIJECT [Suspect]
     Active Substance: SUMATRIPTAN SUCCINATE
     Route: 058
  2. SIMEPREVIR [Suspect]
     Active Substance: SIMEPREVIR
     Indication: HEPATITIS C
     Dosage: 150MG PER DAY
     Route: 048
     Dates: start: 20140317
  3. SOFOSBUVIR [Suspect]
     Active Substance: SOFOSBUVIR
     Indication: HEPATITIS C
     Dosage: 400MG PER DAY
     Route: 048
     Dates: start: 20140317

REACTIONS (12)
  - Horner^s syndrome [Not Recovered/Not Resolved]
  - Haematoma [Recovering/Resolving]
  - Aphasia [Recovering/Resolving]
  - Overdose [Unknown]
  - Ruptured cerebral aneurysm [Recovering/Resolving]
  - Cerebrovascular disorder [Unknown]
  - Left ventricular hypertrophy [Unknown]
  - Cerebrovascular accident [Recovering/Resolving]
  - Hemiparesis [Recovering/Resolving]
  - Somnolence [Recovering/Resolving]
  - Miosis [Unknown]
  - Dysarthria [Not Recovered/Not Resolved]

NARRATIVE: CASE EVENT DATE: 201404
